FAERS Safety Report 6040971-3 (Version None)
Quarter: 2009Q1

REPORT INFORMATION
  Report Type: 
  Country: None (occurrence: None)
  Receive Date: 20090116
  Receipt Date: 20080716
  Transmission Date: 20090719
  Serious: No
  Sender: FDA-Public Use
  Company Number: US-BRISTOL-MYERS SQUIBB COMPANY-14264691

PATIENT
  Age: 19 Year
  Sex: Male

DRUGS (2)
  1. ABILIFY [Suspect]
     Indication: AGGRESSION
     Dates: start: 20080101
  2. ZOLOFT [Concomitant]

REACTIONS (3)
  - BRUXISM [None]
  - HYPOAESTHESIA [None]
  - HYPOAESTHESIA FACIAL [None]
